FAERS Safety Report 11813809 (Version 1)
Quarter: 2015Q4

REPORT INFORMATION
  Report Type: Spontaneous
  Country: US (occurrence: None)
  Receive Date: 20151208
  Receipt Date: 20151208
  Transmission Date: 20160305
  Serious: Yes (Hospitalization)
  Sender: FDA-Public Use
  Company Number: None

PATIENT
  Age: 73 Year
  Sex: Male
  Weight: 62.9 kg

DRUGS (10)
  1. FOLVITE [Concomitant]
     Active Substance: FOLIC ACID
  2. DRISDOL [Concomitant]
     Active Substance: ERGOCALCIFEROL
  3. SYNTHROID [Concomitant]
     Active Substance: LEVOTHYROXINE SODIUM
  4. ZOLOFT [Concomitant]
     Active Substance: SERTRALINE HYDROCHLORIDE
  5. ZOFRAN [Concomitant]
     Active Substance: ONDANSETRON HYDROCHLORIDE
  6. BLEOMYCIN [Suspect]
     Active Substance: BLEOMYCIN SULFATE
     Indication: CHRONIC LYMPHOCYTIC LEUKAEMIA
     Dosage: 10UNITS/M2X1.98M2 ONCE OVER 10 MIN IV
     Route: 042
  7. COLACE [Concomitant]
     Active Substance: DOCUSATE SODIUM
  8. LEVAQUIN [Concomitant]
     Active Substance: LEVOFLOXACIN
  9. VITAMIN B12 [Concomitant]
     Active Substance: CYANOCOBALAMIN
  10. LIPITOR [Concomitant]
     Active Substance: ATORVASTATIN CALCIUM

REACTIONS (2)
  - Pneumonitis [None]
  - Respiratory distress [None]

NARRATIVE: CASE EVENT DATE: 20150225
